FAERS Safety Report 7954826-8 (Version None)
Quarter: 2011Q4

REPORT INFORMATION
  Report Type: 
  Country: None (occurrence: None)
  Receive Date: 20111202
  Receipt Date: 20111121
  Transmission Date: 20120403
  Serious: Yes (Death)
  Sender: FDA-Public Use
  Company Number: AT-ACTELION-A-CH2011-57422

PATIENT
  Sex: Female

DRUGS (10)
  1. LASIX [Concomitant]
  2. DIAMICRON [Concomitant]
  3. SIMVASTATIN [Concomitant]
  4. PANTOPRAZOLE SODIUM [Concomitant]
  5. COMBIVENT [Concomitant]
  6. MARCUMAR [Concomitant]
  7. REMODULIN [Concomitant]
  8. GLUCOPHAGE [Concomitant]
  9. TRACLEER [Suspect]
     Indication: PULMONARY ARTERIAL HYPERTENSION
     Dosage: 125 MG, BID
     Route: 048
     Dates: start: 20060601
  10. OXYGEN [Concomitant]

REACTIONS (1)
  - CARDIAC FAILURE [None]
